FAERS Safety Report 8819777 (Version 1)
Quarter: 2012Q4

REPORT INFORMATION
  Report Type: 
  Country: BR (occurrence: BR)
  Receive Date: 20121001
  Receipt Date: 20121001
  Transmission Date: 20130627
  Serious: Yes (Other)
  Sender: FDA-Public Use
  Company Number: BR-BRISTOL-MYERS SQUIBB COMPANY-16985806

PATIENT
  Age: 83 Year
  Sex: Female
  Weight: 56 kg

DRUGS (6)
  1. APROVEL TABS 300 MG [Suspect]
     Indication: HYPERTENSION
     Dosage: 1 df= 1 tab. started 3 or 4 years ago
     Route: 048
  2. AMARYL [Concomitant]
     Indication: DIABETES MELLITUS
     Dosage: tab. started 10 yrs ago
     Route: 048
  3. ATORVASTATIN [Concomitant]
     Dosage: 1 df= 1 tab
     Route: 048
     Dates: start: 201209
  4. OXYBUTYNIN [Concomitant]
     Dosage: 1 df=  1 tab
     Route: 048
     Dates: start: 201208
  5. AMLODIPINE [Concomitant]
     Dosage: 1 df-1tab. started 3 yrs ago
     Route: 048
  6. SIMVASTATIN [Concomitant]
     Dosage: 1 df= 1 tab
     Route: 048
     Dates: end: 201209

REACTIONS (5)
  - Femoral artery occlusion [Unknown]
  - Skin ulcer [Unknown]
  - Nervousness [Unknown]
  - Hypertension [Unknown]
  - Overdose [Unknown]
